FAERS Safety Report 5650071-X (Version None)
Quarter: 2008Q1

REPORT INFORMATION
  Report Type: 
  Country: None (occurrence: None)
  Receive Date: 20080303
  Receipt Date: 20080221
  Transmission Date: 20080703
  Serious: Yes (Other)
  Sender: FDA-Public Use
  Company Number: 2008BI004456

PATIENT
  Age: 43 Year
  Sex: Male
  Weight: 82.5547 kg

DRUGS (4)
  1. TYSABRI [Suspect]
     Indication: MULTIPLE SCLEROSIS
     Dosage: 300 MG;QM;IV
     Route: 042
     Dates: start: 20070221
  2. VIAGRA [Concomitant]
  3. AMITRIPTYLINE HCL [Concomitant]
  4. VESICARE [Concomitant]

REACTIONS (3)
  - CEREBRAL ATROPHY [None]
  - MULTIPLE SCLEROSIS [None]
  - NUCLEAR MAGNETIC RESONANCE IMAGING ABNORMAL [None]
